FAERS Safety Report 16138590 (Version 1)
Quarter: 2019Q1

REPORT INFORMATION
  Report Type: Report from Study
  Country: None (occurrence: US)
  Receive Date: 20190330
  Receipt Date: 20190330
  Transmission Date: 20190418
  Serious: Yes (Hospitalization, Other)
  Sender: FDA-Public Use
  Company Number: US-ABBVIE-19K-163-2644286-00

PATIENT
  Age: 58 Year
  Sex: Male

DRUGS (1)
  1. HUMIRA [Suspect]
     Active Substance: ADALIMUMAB
     Indication: COLITIS ULCERATIVE
     Route: 058

REACTIONS (7)
  - Hip arthroplasty [Unknown]
  - Sleep apnoea syndrome [Unknown]
  - Red blood cell count decreased [Unknown]
  - Intestinal stenosis [Unknown]
  - Oxygen saturation decreased [Unknown]
  - Volvulus [Unknown]
  - Hospitalisation [Unknown]

NARRATIVE: CASE EVENT DATE: 2018
